FAERS Safety Report 17200073 (Version 1)
Quarter: 2019Q4

REPORT INFORMATION
  Report Type: Spontaneous
  Country: IT (occurrence: IT)
  Receive Date: 20191226
  Receipt Date: 20191226
  Transmission Date: 20200122
  Serious: Yes (Hospitalization, Other)
  Sender: FDA-Public Use
  Company Number: IT-PFIZER INC-2019553756

PATIENT
  Age: 87 Year
  Sex: Male

DRUGS (12)
  1. METFORAL [Concomitant]
     Active Substance: METFORMIN HYDROCHLORIDE
     Dosage: UNK
     Route: 048
  2. LANSOX [Concomitant]
     Active Substance: LANSOPRAZOLE
     Dosage: UNK
     Route: 048
  3. VALSARTAN. [Concomitant]
     Active Substance: VALSARTAN
     Dosage: 160 MG
     Route: 048
  4. CITALOPRAM [Concomitant]
     Active Substance: CITALOPRAM HYDROBROMIDE
     Dosage: UNK
     Route: 048
  5. DOBETIN [CYANOCOBALAMIN] [Concomitant]
     Dosage: UNK
     Route: 048
  6. METOPROLOL. [Suspect]
     Active Substance: METOPROLOL
     Indication: HYPERTENSION
     Dosage: 1 DF, QD
     Route: 048
     Dates: start: 20190101, end: 20190519
  7. FINASTERIDE. [Concomitant]
     Active Substance: FINASTERIDE
     Dosage: UNK
     Route: 048
  8. CARDIRENE [Concomitant]
     Active Substance: ASPIRIN DL-LYSINE
     Dosage: UNK
     Route: 048
  9. MADOPAR [Concomitant]
     Active Substance: BENSERAZIDE HYDROCHLORIDE\LEVODOPA
     Dosage: UNK
     Route: 048
  10. FOLINA [FOLIC ACID] [Concomitant]
     Active Substance: FOLIC ACID
     Dosage: UNK
     Route: 048
  11. TORVAST [Concomitant]
     Active Substance: ATORVASTATIN
     Dosage: UNK
     Route: 048
  12. AMIODACORE [Suspect]
     Active Substance: AMIODARONE
     Indication: TACHYCARDIA
     Dosage: 1 DF, QD
     Route: 048
     Dates: start: 20190101, end: 20190519

REACTIONS (2)
  - Bradycardia [Unknown]
  - Syncope [Unknown]

NARRATIVE: CASE EVENT DATE: 20190519
